FAERS Safety Report 6685935-1 (Version None)
Quarter: 2010Q2

REPORT INFORMATION
  Report Type: 
  Country: None (occurrence: None)
  Receive Date: 20100419
  Receipt Date: 20100405
  Transmission Date: 20101027
  Serious: Yes (Other)
  Sender: FDA-Public Use
  Company Number: PHHY2010KR21311

PATIENT
  Age: 74 Year
  Sex: Male

DRUGS (1)
  1. PAMIDRONATE DISODIUM [Suspect]
     Indication: BONE LESION
     Dosage: 15 MG, QMO
     Route: 042

REACTIONS (1)
  - OSTEONECROSIS [None]
